FAERS Safety Report 8169316-X (Version None)
Quarter: 2012Q1

REPORT INFORMATION
  Report Type: 
  Country: None (occurrence: None)
  Receive Date: 20120228
  Receipt Date: 20120217
  Transmission Date: 20120608
  Serious: No
  Sender: FDA-Public Use
  Company Number: US-BIOGENIDEC-2012BI006667

PATIENT
  Sex: Female

DRUGS (4)
  1. AVONEX [Suspect]
     Indication: MULTIPLE SCLEROSIS
     Route: 030
     Dates: start: 20051021, end: 20060903
  2. AVONEX [Suspect]
     Route: 030
     Dates: start: 20080301, end: 20100930
  3. ACETAMINOPHEN [Concomitant]
     Indication: PREMEDICATION
  4. AVONEX [Suspect]
     Route: 030
     Dates: start: 20110527, end: 20110601

REACTIONS (3)
  - DYSGRAPHIA [None]
  - DRUG INEFFECTIVE [None]
  - INFLUENZA LIKE ILLNESS [None]
